FAERS Safety Report 5801522-9 (Version None)
Quarter: 2008Q3

REPORT INFORMATION
  Report Type: 
  Country: None (occurrence: None)
  Receive Date: 20080703
  Receipt Date: 20080703
  Transmission Date: 20090109
  Serious: Yes (Other)
  Sender: FDA-Public Use
  Company Number: None

PATIENT
  Age: 51 Year
  Sex: Male
  Weight: 108.8633 kg

DRUGS (1)
  1. LIPITOR [Suspect]
     Indication: HYPERCHOLESTEROLAEMIA
     Dosage: 40 MG DAILY PO
     Route: 048

REACTIONS (6)
  - AMNESIA [None]
  - ASTHENIA [None]
  - DYSGRAPHIA [None]
  - DYSPHEMIA [None]
  - IMPAIRED WORK ABILITY [None]
  - INSOMNIA [None]
